FAERS Safety Report 18975561 (Version 1)
Quarter: 2021Q1

REPORT INFORMATION
  Report Type: Spontaneous
  Country: FR (occurrence: FR)
  Receive Date: 20210305
  Receipt Date: 20210305
  Transmission Date: 20210420
  Serious: Yes (Hospitalization)
  Sender: FDA-Public Use
  Company Number: FR-TEVA-2021-FR-1886600

PATIENT
  Age: 36 Year
  Sex: Male

DRUGS (3)
  1. LARGACTIL [Suspect]
     Active Substance: CHLORPROMAZINE
     Indication: SCHIZOPHRENIA
     Dosage: 550MG
     Route: 065
     Dates: start: 20210118, end: 20210127
  2. OLANZAPINE. [Suspect]
     Active Substance: OLANZAPINE
     Indication: SCHIZOPHRENIA
     Dosage: 30MG
     Route: 065
     Dates: start: 20210122, end: 20210124
  3. HALDOL [Suspect]
     Active Substance: HALOPERIDOL
     Indication: SCHIZOPHRENIA
     Dosage: 60MG
     Route: 065
     Dates: start: 20210118, end: 20210202

REACTIONS (1)
  - Hepatic cirrhosis [Recovering/Resolving]

NARRATIVE: CASE EVENT DATE: 20210125
